FAERS Safety Report 25972114 (Version 1)
Quarter: 2025Q4

REPORT INFORMATION
  Report Type: Spontaneous
  Country: US (occurrence: US)
  Receive Date: 20251029
  Receipt Date: 20251029
  Transmission Date: 20260118
  Serious: No
  Sender: ELI LILLY AND COMPANY
  Company Number: US-ELI_LILLY_AND_COMPANY-US202510025930

PATIENT
  Age: 52 Year
  Sex: Female

DRUGS (3)
  1. EBGLYSS [Suspect]
     Active Substance: LEBRIKIZUMAB-LBKZ
     Indication: Product used for unknown indication
     Dosage: UNK UNK, UNKNOWN
     Route: 065
     Dates: start: 20250820
  2. EBGLYSS [Suspect]
     Active Substance: LEBRIKIZUMAB-LBKZ
     Dosage: 1 DOSAGE FORM, UNKNOWN
     Route: 065
     Dates: start: 20250925
  3. EBGLYSS [Suspect]
     Active Substance: LEBRIKIZUMAB-LBKZ
     Dosage: 1 DOSAGE FORM, UNKNOWN
     Route: 065
     Dates: start: 20251012

REACTIONS (2)
  - Rash [Unknown]
  - Injection site reaction [Unknown]

NARRATIVE: CASE EVENT DATE: 20250925
